FAERS Safety Report 21221779 (Version 1)
Quarter: 2022Q3

REPORT INFORMATION
  Report Type: Other
  Country: TN (occurrence: None)
  Receive Date: 20220817
  Receipt Date: 20220817
  Transmission Date: 20221027
  Serious: Yes (Other)
  Sender: FDA-Public Use
  Company Number: TN-ROCHE-3162730

PATIENT

DRUGS (1)
  1. TOCILIZUMAB [Suspect]
     Active Substance: TOCILIZUMAB
     Indication: COVID-19 pneumonia
     Dosage: 2 DOSES WITHIN AN INTERVAL OF 48 HOURS BETWEEN THE TWO DOSES.
     Route: 042

REACTIONS (3)
  - Respiratory disorder [Unknown]
  - COVID-19 pneumonia [Unknown]
  - Off label use [Unknown]
